FAERS Safety Report 4945337-2 (Version None)
Quarter: 2006Q1

REPORT INFORMATION
  Report Type: 
  Country: None (occurrence: None)
  Receive Date: 20060315
  Receipt Date: 20060315
  Transmission Date: 20060701
  Serious: Yes (Hospitalization, Other)
  Sender: FDA-Public Use
  Company Number: None

PATIENT

DRUGS (1)
  1. ESTRACE [Suspect]
     Dosage: SMALL AMT ON TIP OF FINGER PRN VAG
     Route: 067

REACTIONS (6)
  - ANGIONEUROTIC OEDEMA [None]
  - DRUG HYPERSENSITIVITY [None]
  - DYSPNOEA [None]
  - HEART RATE IRREGULAR [None]
  - PRURITUS [None]
  - RESPIRATORY DISTRESS [None]
